FAERS Safety Report 13463119 (Version 1)
Quarter: 2017Q2

REPORT INFORMATION
  Report Type: Spontaneous
  Country: US (occurrence: US)
  Receive Date: 20170420
  Receipt Date: 20170420
  Transmission Date: 20170830
  Serious: No
  Sender: FDA-Public Use
  Company Number: US-B.I. PHARMACEUTICALS,INC./RIDGEFIELD-2017-BI-022447

PATIENT
  Sex: Female

DRUGS (1)
  1. STRIVERDI RESPIMAT [Suspect]
     Active Substance: OLODATEROL HYDROCHLORIDE
     Indication: CHRONIC OBSTRUCTIVE PULMONARY DISEASE
     Dosage: 2 INHALATINS ONCE A DAY;  FORM STRENGTH: 2.5 MCG; FORMULATION: INHALATION SPRAY ADMINISTRATION CORRE
     Route: 055

REACTIONS (1)
  - Drug ineffective [Unknown]

NARRATIVE: CASE EVENT DATE: 2016
